FAERS Safety Report 8607580-0 (Version None)
Quarter: 2012Q3

REPORT INFORMATION
  Report Type: 
  Country: None (occurrence: None)
  Receive Date: 20120821
  Receipt Date: 20120816
  Transmission Date: 20120928
  Serious: Yes (Hospitalization)
  Sender: FDA-Public Use
  Company Number: DE-SANOFI-AVENTIS-2012SA059143

PATIENT
  Age: 80 Year
  Sex: Male
  Weight: 97 kg

DRUGS (2)
  1. CORINFAR [Concomitant]
     Indication: DRUG INTOLERANCE
     Dosage: DAILY DOSE: 20 MG MILLGRAM(S) EVERY DAYS
     Route: 065
     Dates: start: 20090101, end: 20120228
  2. CLOPIDOGREL BISULFATE [Suspect]
     Indication: DRUG INTOLERANCE
     Dosage: DAILY DOSE: 75 MG MILLGRAM(S) EVERY DAYS
     Route: 065
     Dates: start: 20120220, end: 20120228

REACTIONS (5)
  - VISUAL IMPAIRMENT [None]
  - VOMITING [None]
  - FACIAL PARESIS [None]
  - TRANSIENT ISCHAEMIC ATTACK [None]
  - DIZZINESS [None]
